FAERS Safety Report 8336802 (Version 3)
Quarter: 2017Q4

REPORT INFORMATION
  Report Type: Report from Study
  Country: US (occurrence: US)
  Receive Date: 20120113
  Receipt Date: 20171010
  Transmission Date: 20180321
  Serious: Yes (Hospitalization)
  Sender: FDA-Public Use
  Company Number: US-UCBSA-8052716

PATIENT
  Age: 50 Year
  Sex: Female
  Weight: 65.77 kg

DRUGS (4)
  1. IMURAN [Suspect]
     Active Substance: AZATHIOPRINE
     Indication: CROHN^S DISEASE
  2. IMURAN [Suspect]
     Active Substance: AZATHIOPRINE
     Dosage: UNK
     Dates: start: 2009
  3. PREDNISONE. [Concomitant]
     Active Substance: PREDNISONE
     Indication: PRODUCT USED FOR UNKNOWN INDICATION
  4. CERTOLIZUMAB PEGOL CD [Suspect]
     Active Substance: CERTOLIZUMAB PEGOL
     Indication: CROHN^S DISEASE
     Dosage: 400 MG, UNK
     Route: 058
     Dates: start: 20090610, end: 20090816

REACTIONS (1)
  - Urinary tract infection [Recovered/Resolved]

NARRATIVE: CASE EVENT DATE: 20090816
